FAERS Safety Report 18617421 (Version 1)
Quarter: 2020Q4

REPORT INFORMATION
  Report Type: Spontaneous
  Country: US (occurrence: US)
  Receive Date: 20201214
  Receipt Date: 20201214
  Transmission Date: 20210114
  Serious: Yes (Other)
  Sender: FDA-Public Use
  Company Number: None

PATIENT
  Age: 48 Year
  Sex: Female
  Weight: 85.5 kg

DRUGS (7)
  1. IBUPROFEN. [Concomitant]
     Active Substance: IBUPROFEN
  2. BACLOFEN/DIAZEPAM/KETAMINE [Concomitant]
  3. COLLAGEN HERBAL TEA [Concomitant]
  4. HYDROCODOONE [Concomitant]
  5. VIT D [Concomitant]
     Active Substance: VITAMIN D NOS
  6. MULTIHANCE [Suspect]
     Active Substance: GADOBENATE DIMEGLUMINE
     Indication: MAGNETIC RESONANCE IMAGING
     Route: 042
     Dates: start: 20201209, end: 20201209
  7. MAGNESIUM [Concomitant]
     Active Substance: MAGNESIUM

REACTIONS (4)
  - Urticaria [None]
  - Hypersensitivity [None]
  - Blood pressure increased [None]
  - Contrast media reaction [None]

NARRATIVE: CASE EVENT DATE: 20201209
